FAERS Safety Report 4503068-7 (Version None)
Quarter: 2004Q4

REPORT INFORMATION
  Report Type: 
  Country: None (occurrence: None)
  Receive Date: 20041116
  Receipt Date: 20041116
  Transmission Date: 20050328
  Serious: Yes (Death)
  Sender: FDA-Public Use
  Company Number: None

PATIENT
  Sex: Female
  Weight: 40.8237 kg

DRUGS (3)
  1. GEMCITABINE [Suspect]
     Indication: PANCREATIC CARCINOMA
     Dosage: 2250 MG IV
     Route: 042
     Dates: start: 20040929
  2. GEMCITABINE [Suspect]
     Indication: PANCREATIC CARCINOMA
     Dosage: 2250 MG IV
     Route: 042
     Dates: start: 20041006
  3. GEMCITABINE [Suspect]
     Dosage: 1575 MG
     Dates: start: 20041019

REACTIONS (5)
  - DEHYDRATION [None]
  - ELECTROLYTE IMBALANCE [None]
  - HYPOGLYCAEMIA [None]
  - PANCREATIC CARCINOMA [None]
  - RENAL FAILURE [None]
